FAERS Safety Report 13269352 (Version 1)
Quarter: 2017Q1

REPORT INFORMATION
  Report Type: Report from Study
  Country: None (occurrence: DE)
  Receive Date: 20170224
  Receipt Date: 20170224
  Transmission Date: 20170428
  Serious: Yes (Death)
  Sender: FDA-Public Use
  Company Number: DE-ABBVIE-17P-062-1882459-00

PATIENT
  Age: 81 Year
  Sex: Male

DRUGS (2)
  1. QUETIAPIN [Concomitant]
     Active Substance: QUETIAPINE
     Indication: PRODUCT USED FOR UNKNOWN INDICATION
     Dosage: NOCTE
  2. DUODOPA [Suspect]
     Active Substance: CARBIDOPA\LEVODOPA
     Indication: PARKINSON^S DISEASE
     Dosage: MD 9.0 ML; CRD 3.8 ML/H, ED 2.0
     Route: 050

REACTIONS (3)
  - Death [Fatal]
  - Hypotonia [Unknown]
  - Rales [Unknown]

NARRATIVE: CASE EVENT DATE: 20170216
